FAERS Safety Report 7253819-6 (Version None)
Quarter: 2011Q1

REPORT INFORMATION
  Report Type: 
  Country: None (occurrence: None)
  Receive Date: 20110129
  Receipt Date: 20100426
  Transmission Date: 20110831
  Serious: No
  Sender: FDA-Public Use
  Company Number: US-ABBOTT-10P-163-0640738-00

PATIENT
  Sex: Male
  Weight: 79.45 kg

DRUGS (9)
  1. HUMIRA [Suspect]
  2. HUMIRA [Suspect]
  3. AZATHIOPRINE [Concomitant]
     Indication: CROHN'S DISEASE
     Dates: start: 20090101
  4. AZATHIOPRINE [Concomitant]
  5. HUMIRA [Suspect]
     Indication: CROHN'S DISEASE
     Dates: start: 20090601, end: 20090601
  6. PRILOSEC [Concomitant]
     Indication: PROPHYLAXIS
  7. HUMIRA [Suspect]
     Dates: start: 20090801
  8. PRILOSEC [Concomitant]
     Indication: DYSPEPSIA
  9. MULTI-VITAMIN [Concomitant]
     Indication: PRODUCT USED FOR UNKNOWN INDICATION

REACTIONS (1)
  - CROHN'S DISEASE [None]
